FAERS Safety Report 24196361 (Version 1)
Quarter: 2024Q3

REPORT INFORMATION
  Report Type: Spontaneous
  Country: CA (occurrence: CA)
  Receive Date: 20240809
  Receipt Date: 20240809
  Transmission Date: 20241017
  Serious: Yes (Death)
  Sender: ROCHE
  Company Number: CA-ROCHE-10000050843

PATIENT

DRUGS (2)
  1. BEVACIZUMAB [Suspect]
     Active Substance: BEVACIZUMAB
     Indication: Glioma
     Route: 065
  2. ETOPOSIDE [Suspect]
     Active Substance: ETOPOSIDE
     Indication: Glioma
     Route: 048

REACTIONS (5)
  - Anaemia [Fatal]
  - Death [Fatal]
  - Glioma [Fatal]
  - Intentional product use issue [Fatal]
  - Toxicity to various agents [Fatal]
